FAERS Safety Report 14968920 (Version 1)
Quarter: 2018Q2

REPORT INFORMATION
  Report Type: Spontaneous
  Country: US (occurrence: US)
  Receive Date: 20180511
  Receipt Date: 20180511
  Transmission Date: 20180711
  Serious: Yes (Hospitalization)
  Sender: FDA-Public Use
  Company Number: None

PATIENT
  Age: 69 Year
  Sex: Female
  Weight: 74.84 kg

DRUGS (2)
  1. RIFAMPIN 300MG [Suspect]
     Active Substance: RIFAMPIN SODIUM
     Indication: TUBERCULOSIS
     Route: 048
     Dates: start: 20180327, end: 20180409
  2. ISONIAZID 300MG [Suspect]
     Active Substance: ISONIAZID
     Indication: TUBERCULOSIS
     Route: 048
     Dates: start: 20180327, end: 20180409

REACTIONS (2)
  - Ear infection [None]
  - Hepatic enzyme increased [None]

NARRATIVE: CASE EVENT DATE: 20180409
